FAERS Safety Report 24573621 (Version 1)
Quarter: 2024Q4

REPORT INFORMATION
  Report Type: Spontaneous
  Country: US (occurrence: US)
  Receive Date: 20241103
  Receipt Date: 20241103
  Transmission Date: 20250115
  Serious: No
  Sender: ELI LILLY AND COMPANY
  Company Number: US-ELI_LILLY_AND_COMPANY-US202410022093

PATIENT
  Age: 80 Year
  Sex: Female

DRUGS (4)
  1. MOUNJARO [Suspect]
     Active Substance: TIRZEPATIDE
     Indication: Cardiac disorder
     Dosage: 2.5 MG, UNKNOWN
     Route: 058
     Dates: start: 20241013
  2. MOUNJARO [Suspect]
     Active Substance: TIRZEPATIDE
     Indication: Cardiac disorder
     Dosage: 2.5 MG, UNKNOWN
     Route: 058
     Dates: start: 20241013
  3. MOUNJARO [Suspect]
     Active Substance: TIRZEPATIDE
     Indication: Cardiac disorder
     Dosage: 2.5 MG, UNKNOWN
     Route: 058
     Dates: start: 20241013
  4. MOUNJARO [Suspect]
     Active Substance: TIRZEPATIDE
     Indication: Cardiac disorder
     Dosage: 2.5 MG, UNKNOWN
     Route: 058
     Dates: start: 20241013

REACTIONS (5)
  - Off label use [Unknown]
  - Product dose omission issue [Unknown]
  - Injection site bruising [Unknown]
  - Nausea [Recovered/Resolved]
  - Constipation [Unknown]

NARRATIVE: CASE EVENT DATE: 20241013
